FAERS Safety Report 13213313 (Version 1)
Quarter: 2017Q1

REPORT INFORMATION
  Report Type: Spontaneous
  Country: None (occurrence: US)
  Receive Date: 20170209
  Receipt Date: 20170209
  Transmission Date: 20170428
  Serious: No
  Sender: FDA-Public Use
  Company Number: US-ALLERGAN-1675166US

PATIENT
  Sex: Female

DRUGS (2)
  1. BOTOX [Suspect]
     Active Substance: ONABOTULINUMTOXINA
     Indication: SKIN WRINKLING
     Dosage: UNK
     Dates: start: 20160809, end: 20160809
  2. JUVEDERM ULTRA PLUS [Suspect]
     Active Substance: HYALURONIC ACID\LIDOCAINE HYDROCHLORIDE
     Indication: SKIN WRINKLING
     Dosage: UNK UNK, SINGLE
     Route: 023

REACTIONS (6)
  - Swelling face [Unknown]
  - Injection site mass [Unknown]
  - Eye pain [Unknown]
  - Lacrimation increased [Unknown]
  - Infection [Not Recovered/Not Resolved]
  - Skin discolouration [Unknown]
